FAERS Safety Report 7546765-1 (Version None)
Quarter: 2011Q2

REPORT INFORMATION
  Report Type: 
  Country: None (occurrence: None)
  Receive Date: 20110614
  Receipt Date: 20110614
  Transmission Date: 20111010
  Serious: Yes (Other)
  Sender: FDA-Public Use
  Company Number: B0726054A

PATIENT
  Sex: Female

DRUGS (1)
  1. AVANDIA [Suspect]

REACTIONS (4)
  - DISABILITY [None]
  - CARDIAC DISORDER [None]
  - EMOTIONAL DISTRESS [None]
  - CARDIAC ASSISTANCE DEVICE USER [None]
